FAERS Safety Report 5747056-1 (Version None)
Quarter: 2008Q2

REPORT INFORMATION
  Report Type: 
  Country: None (occurrence: None)
  Receive Date: 20080522
  Receipt Date: 20080519
  Transmission Date: 20081010
  Serious: Yes (Hospitalization)
  Sender: FDA-Public Use
  Company Number: CA-BOEHRINGER INGELHEIM GMBH, GERMANY-2008-DE-02906GD

PATIENT

DRUGS (4)
  1. IPRATROPIUM BROMIDE [Suspect]
     Indication: OBSTRUCTIVE AIRWAYS DISORDER
  2. ANTIARRHYTMICS [Concomitant]
  3. FUROSEMIDE [Concomitant]
  4. ANGIOTENSIN-CONVERTING ENZYME INHIBITOR [Concomitant]

REACTIONS (4)
  - CARDIAC FAILURE [None]
  - CEREBROVASCULAR ACCIDENT [None]
  - MYOCARDIAL INFARCTION [None]
  - SUPRAVENTRICULAR TACHYCARDIA [None]
